FAERS Safety Report 13446417 (Version 1)
Quarter: 2017Q2

REPORT INFORMATION
  Report Type: Spontaneous
  Country: US (occurrence: US)
  Receive Date: 20170414
  Receipt Date: 20170414
  Transmission Date: 20170830
  Serious: Yes (Hospitalization)
  Sender: FDA-Public Use
  Company Number: None

PATIENT
  Age: 70 Year
  Sex: Female

DRUGS (15)
  1. GABAPENTIN. [Concomitant]
     Active Substance: GABAPENTIN
  2. ROSUVASTATIN. [Concomitant]
     Active Substance: ROSUVASTATIN
  3. METOLAZONE. [Concomitant]
     Active Substance: METOLAZONE
  4. AMLODIPINE [Concomitant]
     Active Substance: AMLODIPINE BESYLATE
  5. DONEPEZIL. [Concomitant]
     Active Substance: DONEPEZIL
  6. ADCIRCA [Suspect]
     Active Substance: TADALAFIL
     Indication: PULMONARY ARTERIAL HYPERTENSION
     Route: 048
     Dates: start: 20150730
  7. LISINOPRIL. [Concomitant]
     Active Substance: LISINOPRIL
  8. DICLOFENAC [Concomitant]
     Active Substance: DICLOFENAC
  9. GLIPIZIDE. [Concomitant]
     Active Substance: GLIPIZIDE
  10. CEFUROXIME. [Concomitant]
     Active Substance: CEFUROXIME
  11. METOPROLOL. [Concomitant]
     Active Substance: METOPROLOL
  12. CLONIDINE. [Concomitant]
     Active Substance: CLONIDINE
  13. PRIMIDONE. [Concomitant]
     Active Substance: PRIMIDONE
  14. LEVOTHYROXIN [Concomitant]
     Active Substance: LEVOTHYROXINE
  15. TRAMADOL. [Concomitant]
     Active Substance: TRAMADOL

REACTIONS (1)
  - Hospitalisation [None]
